FAERS Safety Report 16724663 (Version 3)
Quarter: 2019Q4

REPORT INFORMATION
  Report Type: Report from Study
  Country: US (occurrence: US)
  Receive Date: 20190821
  Receipt Date: 20191004
  Transmission Date: 20200122
  Serious: Yes (Hospitalization, Other)
  Sender: FDA-Public Use
  Company Number: US-TESAROUBC-2019-TSO02224-US

PATIENT
  Age: 67 Year
  Sex: Female

DRUGS (3)
  1. NIRAPARIB [Suspect]
     Active Substance: NIRAPARIB
     Indication: UTERINE CANCER
     Dosage: 200 MG, HS WITHOUT FOOD
     Dates: start: 20190604, end: 20190626
  2. NIRAPARIB [Suspect]
     Active Substance: NIRAPARIB
     Dosage: 100MG/200MG ALTERNATING QOD WITHOUT FOOD
     Dates: start: 20190823
  3. NIRAPARIB [Suspect]
     Active Substance: NIRAPARIB
     Indication: ENDOMETRIAL CANCER
     Dosage: ALTERNATING 100/200 MG DOSE
     Route: 048
     Dates: start: 20190709, end: 20190819

REACTIONS (13)
  - Vomiting [Unknown]
  - Stent placement [Recovered/Resolved]
  - Product use in unapproved indication [Unknown]
  - Red blood cell count decreased [Unknown]
  - Renal disorder [Unknown]
  - Retching [Unknown]
  - Platelet count decreased [Recovered/Resolved]
  - Blood count abnormal [Recovered/Resolved]
  - Inappropriate schedule of product administration [Unknown]
  - Blood pressure increased [Recovering/Resolving]
  - Constipation [Recovering/Resolving]
  - Weight increased [Not Recovered/Not Resolved]
  - Abdominal pain [Not Recovered/Not Resolved]

NARRATIVE: CASE EVENT DATE: 20190604
